FAERS Safety Report 6616041-X (Version None)
Quarter: 2010Q1

REPORT INFORMATION
  Report Type: 
  Country: None (occurrence: None)
  Receive Date: 20100305
  Receipt Date: 20100224
  Transmission Date: 20100710
  Serious: Yes (Hospitalization)
  Sender: FDA-Public Use
  Company Number: B0637706B

PATIENT
  Sex: Female
  Weight: 3.9 kg

DRUGS (3)
  1. ZINNAT [Suspect]
     Indication: LYME DISEASE
     Dosage: 500MG PER DAY
     Dates: start: 20090615, end: 20090630
  2. ANTIBIOTICS [Suspect]
     Indication: DRUG USE FOR UNKNOWN INDICATION
  3. PAIN MEDICATION (UNSPECIFIED) [Suspect]
     Indication: DRUG USE FOR UNKNOWN INDICATION

REACTIONS (3)
  - DRUG EXPOSURE DURING PREGNANCY [None]
  - INFECTION [None]
  - SOMNOLENCE [None]
